FAERS Safety Report 10155199 (Version 1)
Quarter: 2014Q2

REPORT INFORMATION
  Report Type: Spontaneous
  Country: JP (occurrence: JP)
  Receive Date: 20140506
  Receipt Date: 20140506
  Transmission Date: 20141212
  Serious: Yes (Hospitalization, Other)
  Sender: FDA-Public Use
  Company Number: JP-ACTAVIS-2014-09173

PATIENT
  Age: 77 Year
  Sex: Female

DRUGS (3)
  1. OXALIPLATIN [Suspect]
     Indication: COLORECTAL CANCER
     Dosage: 85 MG/M2, 1/TWO WEEKS
     Route: 040
  2. LEUCOVORIN                         /00566701/ [Concomitant]
     Indication: COLORECTAL CANCER
     Dosage: 400 MG/M2, 1/TWO WEEKS
     Route: 040
  3. 5-FLUOROURACIL                     /00098801/ [Concomitant]
     Indication: COLORECTAL CANCER
     Dosage: 400 MG/M2, 1/TWO WEEKS
     Route: 040

REACTIONS (4)
  - Thrombocytopenia [Recovered/Resolved]
  - Hypersensitivity [Recovered/Resolved]
  - Epistaxis [Recovered/Resolved]
  - Petechiae [Recovered/Resolved]
